FAERS Safety Report 10734831 (Version 3)
Quarter: 2015Q4

REPORT INFORMATION
  Report Type: Report from Study
  Country: US (occurrence: US)
  Receive Date: 20150123
  Receipt Date: 20151027
  Transmission Date: 20160304
  Serious: Yes (Death, Hospitalization, Other)
  Sender: FDA-Public Use
  Company Number: US-AMGEN INC.-USASL2014095561

PATIENT
  Age: 54 Year
  Sex: Male

DRUGS (3)
  1. KYPROLIS [Suspect]
     Active Substance: CARFILZOMIB
     Indication: PLASMA CELL MYELOMA
     Dosage: UNK, 2 TIMES/WK
     Route: 042
     Dates: end: 20151008
  2. REVLIMID [Concomitant]
     Active Substance: LENALIDOMIDE
     Dosage: UNK
  3. THALIDOMIDE [Concomitant]
     Active Substance: THALIDOMIDE
     Dosage: UNK

REACTIONS (7)
  - Disturbance in attention [Not Recovered/Not Resolved]
  - Fatigue [Not Recovered/Not Resolved]
  - Malaise [Unknown]
  - Death [Fatal]
  - Localised infection [Unknown]
  - Inflammation [Unknown]
  - Joint range of motion decreased [Unknown]
